FAERS Safety Report 13439034 (Version 1)
Quarter: 2017Q2

REPORT INFORMATION
  Report Type: Spontaneous
  Country: US (occurrence: US)
  Receive Date: 20170413
  Receipt Date: 20170413
  Transmission Date: 20170830
  Serious: Yes (Life-Threatening)
  Sender: FDA-Public Use
  Company Number: US-ROCHE-752732

PATIENT
  Age: 48 Year
  Sex: Female
  Weight: 76.2 kg

DRUGS (2)
  1. DEXAMETHASONE. [Suspect]
     Active Substance: DEXAMETHASONE
     Indication: BRONCHITIS
     Dosage: RECEIVED ONE TIME
     Route: 030
     Dates: start: 20101116, end: 20101116
  2. ROCEPHIN [Suspect]
     Active Substance: CEFTRIAXONE SODIUM
     Indication: BRONCHITIS
     Dosage: RECEIVED ONE TIME
     Route: 030
     Dates: start: 20101116, end: 20101116

REACTIONS (1)
  - Anaphylactic reaction [Recovered/Resolved]

NARRATIVE: CASE EVENT DATE: 20101116
